FAERS Safety Report 15186847 (Version 1)
Quarter: 2018Q3

REPORT INFORMATION
  Report Type: Spontaneous
  Country: US (occurrence: US)
  Receive Date: 20180723
  Receipt Date: 20180723
  Transmission Date: 20181010
  Serious: No
  Sender: FDA-Public Use
  Company Number: US-EXELIXIS-CABO-18012984

PATIENT
  Age: 76 Year
  Sex: Male

DRUGS (2)
  1. CABOMETYX [Suspect]
     Active Substance: CABOZANTINIB S-MALATE
     Indication: RENAL CELL CARCINOMA
     Dosage: 40 MG, QD
     Route: 048
     Dates: start: 20171204
  2. MOMETASONE [Concomitant]
     Active Substance: MOMETASONE
     Dosage: UNK

REACTIONS (8)
  - Feeling cold [Not Recovered/Not Resolved]
  - Weight decreased [Recovered/Resolved]
  - Ageusia [Not Recovered/Not Resolved]
  - Dysphonia [Not Recovered/Not Resolved]
  - Retching [Recovered/Resolved]
  - Hypertension [Recovered/Resolved]
  - Nausea [Recovered/Resolved]
  - Diarrhoea [Recovering/Resolving]
